FAERS Safety Report 17162088 (Version 1)
Quarter: 2019Q4

REPORT INFORMATION
  Report Type: Spontaneous
  Country: US (occurrence: US)
  Receive Date: 20191122
  Receipt Date: 20191122
  Transmission Date: 20200122
  Serious: Yes (Death)
  Sender: FDA-Public Use
  Company Number: None

PATIENT
  Age: 76 Year
  Sex: Male
  Weight: 82.6 kg

DRUGS (1)
  1. NALOXEGOL OXALATE. [Suspect]
     Active Substance: NALOXEGOL OXALATE
     Dates: end: 20191110

REACTIONS (4)
  - Lung carcinoma cell type unspecified stage IV [None]
  - Dyspnoea [None]
  - Hypertension [None]
  - Pulmonary embolism [None]

NARRATIVE: CASE EVENT DATE: 20191111
